FAERS Safety Report 8695182 (Version 3)
Quarter: 2013Q1

REPORT INFORMATION
  Report Type: Spontaneous
  Country: US (occurrence: US)
  Receive Date: 20120731
  Receipt Date: 20130121
  Transmission Date: 20140127
  Serious: No
  Sender: FDA-Public Use
  Company Number: US-009507513-1207USA006101

PATIENT
  Sex: Female

DRUGS (5)
  1. TIMOLOL MALEATE [Suspect]
     Indication: GLAUCOMA
     Dosage: 1 GTT, UNK
     Route: 047
     Dates: start: 2008
  2. TIMOLOL MALEATE [Suspect]
     Dosage: 0.5GTT, QAM
     Route: 047
     Dates: end: 20120619
  3. TIMOLOL MALEATE [Suspect]
     Dosage: 0.5 GTT, QAM
     Route: 047
     Dates: start: 20120620
  4. XALATAN [Concomitant]
  5. HYDROCHLOROTHIAZIDE (+) TRIAMTERENE [Concomitant]

REACTIONS (5)
  - Ocular hyperaemia [Recovered/Resolved]
  - Eye inflammation [Recovered/Resolved]
  - Eye swelling [Recovered/Resolved]
  - Eye pruritus [Recovered/Resolved]
  - Blepharospasm [Not Recovered/Not Resolved]
